FAERS Safety Report 8433151-5 (Version None)
Quarter: 2012Q2

REPORT INFORMATION
  Report Type: 
  Country: None (occurrence: None)
  Receive Date: 20120613
  Receipt Date: 20120607
  Transmission Date: 20120825
  Serious: Yes (Hospitalization)
  Sender: FDA-Public Use
  Company Number: US-GLAXOSMITHKLINE-A0791246A

PATIENT
  Age: 66 Year
  Sex: Female
  Weight: 151 kg

DRUGS (8)
  1. PREMARIN [Concomitant]
  2. ELAVIL [Concomitant]
  3. GLYBURIDE [Concomitant]
  4. HYDROCHLOROTHIAZIDE [Concomitant]
  5. AVANDIA [Suspect]
     Indication: DIABETES MELLITUS
     Dosage: 8MG PER DAY
     Route: 048
     Dates: start: 20040101, end: 20040101
  6. CELEBREX [Concomitant]
  7. DETROL [Concomitant]
  8. LISINOPRIL [Concomitant]

REACTIONS (4)
  - CARDIAC FAILURE CONGESTIVE [None]
  - CORONARY ARTERY DISEASE [None]
  - ATRIAL FIBRILLATION [None]
  - MYOCARDIAL INFARCTION [None]
